FAERS Safety Report 8759176 (Version 1)
Quarter: 2012Q4

REPORT INFORMATION
  Report Type: 
  Country: US (occurrence: US)
  Receive Date: 20120829
  Receipt Date: 20120829
  Transmission Date: 20130627
  Serious: No
  Sender: FDA-Public Use
  Company Number: US-009507513-1208USA009458

PATIENT

DRUGS (1)
  1. CLARITIN LIQUIGELS [Suspect]
     Indication: PRODUCT USED FOR UNKNOWN INDICATION
     Dosage: 1 DF, Once
     Route: 048
     Dates: start: 20120113, end: 20120113

REACTIONS (1)
  - Headache [Unknown]
